FAERS Safety Report 9632040 (Version 1)
Quarter: 2013Q4

REPORT INFORMATION
  Report Type: Report from Study
  Country: US (occurrence: US)
  Receive Date: 20131018
  Receipt Date: 20131018
  Transmission Date: 20140711
  Serious: Yes (Hospitalization)
  Sender: FDA-Public Use
  Company Number: US-BAXTER-2013BAX040339

PATIENT
  Sex: Female

DRUGS (1)
  1. ARALAST NP [Suspect]
     Indication: PRODUCT USED FOR UNKNOWN INDICATION
     Route: 042
     Dates: end: 20130801

REACTIONS (2)
  - Complications of transplant surgery [Not Recovered/Not Resolved]
  - Blood pressure decreased [Not Recovered/Not Resolved]
